FAERS Safety Report 9888492 (Version 2)
Quarter: 2014Q4

REPORT INFORMATION
  Report Type: Spontaneous
  Country: US (occurrence: US)
  Receive Date: 20140211
  Receipt Date: 20141117
  Transmission Date: 20150529
  Serious: Yes (Other)
  Sender: FDA-Public Use
  Company Number: US-BAYER-2014-019127

PATIENT
  Age: 46 Year
  Sex: Female
  Weight: 79.82 kg

DRUGS (2)
  1. MIRENA [Suspect]
     Active Substance: LEVONORGESTREL
     Indication: MENORRHAGIA
  2. MIRENA [Suspect]
     Active Substance: LEVONORGESTREL
     Indication: CONTRACEPTION
     Dosage: 20 MCG/24HR, CONT
     Route: 015
     Dates: start: 20090123, end: 20140206

REACTIONS (10)
  - Cystitis [Recovered/Resolved]
  - Anxiety [Recovered/Resolved]
  - Procedural pain [None]
  - Constipation [Recovered/Resolved]
  - Device difficult to use [Recovered/Resolved]
  - Device dislocation [Recovered/Resolved]
  - Pelvic pain [Recovered/Resolved]
  - Diarrhoea [Recovered/Resolved]
  - Abdominal pain [None]
  - Nausea [Recovered/Resolved]

NARRATIVE: CASE EVENT DATE: 201401
